FAERS Safety Report 8173595-2 (Version None)
Quarter: 2012Q1

REPORT INFORMATION
  Report Type: 
  Country: None (occurrence: None)
  Receive Date: 20120229
  Receipt Date: 20120227
  Transmission Date: 20120608
  Serious: Yes (Disabling)
  Sender: FDA-Public Use
  Company Number: US-PFIZER INC-2012051646

PATIENT
  Sex: Female
  Weight: 100.68 kg

DRUGS (7)
  1. LIPITOR [Suspect]
     Dosage: UNK
     Route: 048
     Dates: end: 20120202
  2. TOPAMAX [Concomitant]
     Indication: EPILEPSY
     Dosage: UNK
  3. PRILOSEC [Concomitant]
     Indication: DYSPEPSIA
     Dosage: UNK
  4. LIPITOR [Suspect]
     Indication: BLOOD CHOLESTEROL INCREASED
     Dosage: 10 MG, 1X/DAY
     Route: 048
     Dates: end: 20120202
  5. KEPPRA [Concomitant]
     Indication: EPILEPSY
     Dosage: UNK
  6. ATENOLOL [Concomitant]
     Indication: HYPERTENSION
     Dosage: UNK
  7. HYDROCHLOROTHIAZIDE AND LISINOPRIL [Concomitant]
     Indication: HYPERTENSION
     Dosage: UNK

REACTIONS (2)
  - ARTHRITIS [None]
  - EPILEPSY [None]
